FAERS Safety Report 25102057 (Version 3)
Quarter: 2025Q4

REPORT INFORMATION
  Report Type: Spontaneous
  Country: JP (occurrence: JP)
  Receive Date: 20250320
  Receipt Date: 20251226
  Transmission Date: 20260118
  Serious: Yes (Death, Hospitalization, Other)
  Sender: MERCK SHARP & DOHME LLC
  Company Number: JP-MSD-M2023-19305

PATIENT
  Age: 75 Year
  Sex: Male
  Weight: 59.7 kg

DRUGS (30)
  1. KEYTRUDA [Suspect]
     Active Substance: PEMBROLIZUMAB
     Indication: Renal cell carcinoma stage IV
     Dosage: DOSE DESCRIPTION : 400 MILLIGRAM
     Route: 041
     Dates: start: 20230502, end: 20240118
  2. LENVATINIB MESYLATE [Suspect]
     Active Substance: LENVATINIB MESYLATE
     Indication: Renal cell carcinoma stage IV
     Dosage: DOSE DESCRIPTION : 10 MILLIGRAM?CONCENTRATION: 10 MILLIGRAM
     Route: 048
     Dates: start: 20230502, end: 20230902
  3. LENVATINIB MESYLATE [Suspect]
     Active Substance: LENVATINIB MESYLATE
     Indication: Renal cell carcinoma stage IV
     Dosage: DOSE DESCRIPTION : 10 MILLIGRAM?CONCENTRATION: 10 MILLIGRAM
     Route: 048
     Dates: start: 20230913, end: 20240209
  4. SYMPROIC [Concomitant]
     Active Substance: NALDEMEDINE TOSYLATE
     Dosage: DOSE DESCRIPTION : UNK
     Route: 065
  5. LEVOTHYROXINE SODIUM [Concomitant]
     Active Substance: LEVOTHYROXINE SODIUM
     Dosage: DOSE DESCRIPTION : UNK
     Route: 065
  6. ELOBIXIBAT [Concomitant]
     Active Substance: ELOBIXIBAT
     Dosage: DOSE DESCRIPTION : UNK
     Route: 065
  7. ESOMEPRAZOLE MAGNESIUM [Concomitant]
     Active Substance: ESOMEPRAZOLE MAGNESIUM
     Dosage: DOSE DESCRIPTION : UNK
     Route: 065
  8. SULFAMETHOXAZOLE\TRIMETHOPRIM [Concomitant]
     Active Substance: SULFAMETHOXAZOLE\TRIMETHOPRIM
     Dosage: DOSE DESCRIPTION : UNK
     Route: 065
  9. CALCIUM CARBONATE\CHOLECALCIFEROL\MAGNESIUM CARBONATE [Concomitant]
     Active Substance: CALCIUM CARBONATE\CHOLECALCIFEROL\MAGNESIUM CARBONATE
     Dosage: DOSE DESCRIPTION : UNK
     Route: 065
  10. NIFEDIPINE [Concomitant]
     Active Substance: NIFEDIPINE
     Dosage: DOSE DESCRIPTION : UNK
     Route: 065
  11. MIROGABALIN BESYLATE [Concomitant]
     Active Substance: MIROGABALIN BESYLATE
     Dosage: DOSE DESCRIPTION : UNK
     Route: 065
  12. ZINC [Concomitant]
     Active Substance: ZINC
     Dosage: DOSE DESCRIPTION : UNK
     Route: 065
  13. OXYCODONE HYDROCHLORIDE [Concomitant]
     Active Substance: OXYCODONE HYDROCHLORIDE
     Dosage: DOSE DESCRIPTION : UNK
     Route: 065
  14. TU-100 [Concomitant]
     Active Substance: ASIAN GINSENG\GINGER\ZANTHOXYLUM PIPERITUM FRUIT PULP
     Dosage: DOSE DESCRIPTION : UNK
     Route: 065
  15. CELECOXIB [Concomitant]
     Active Substance: CELECOXIB
  16. MAGNESIUM OXIDE [Concomitant]
     Active Substance: MAGNESIUM OXIDE
  17. POLAPREZINC [Concomitant]
     Active Substance: POLAPREZINC
  18. HERBAL NOS [Concomitant]
     Active Substance: HERBALS
  19. LIMAPROST [Concomitant]
     Active Substance: LIMAPROST
  20. URSODIOL [Concomitant]
     Active Substance: URSODIOL
  21. Glycyron [Concomitant]
  22. SOLU-MEDROL [Concomitant]
     Active Substance: METHYLPREDNISOLONE SODIUM SUCCINATE
  23. PREDONINE [Concomitant]
     Active Substance: PREDNISOLONE
  24. PREDNISOLONE [Concomitant]
     Active Substance: PREDNISOLONE
  25. PROGRAF [Concomitant]
     Active Substance: TACROLIMUS
  26. CYCLOPHOSPHAMIDE [Concomitant]
     Active Substance: CYCLOPHOSPHAMIDE
  27. MEROPENEM [Concomitant]
     Active Substance: MEROPENEM
  28. SULTAMICILLIN [Concomitant]
     Active Substance: SULTAMICILLIN
  29. MORPHINE HYDROCHLORIDE [Concomitant]
     Active Substance: MORPHINE HYDROCHLORIDE
  30. Bisono Tape [Concomitant]

REACTIONS (4)
  - Interstitial lung disease [Fatal]
  - Hypothyroidism [Recovered/Resolved]
  - Hypertension [Recovered/Resolved]
  - Renal disorder [Recovered/Resolved]

NARRATIVE: CASE EVENT DATE: 20230505
